FAERS Safety Report 10679706 (Version 1)
Quarter: 2014Q4

REPORT INFORMATION
  Report Type: Spontaneous
  Country: US (occurrence: US)
  Receive Date: 20141229
  Receipt Date: 20141229
  Transmission Date: 20150529
  Serious: No
  Sender: FDA-Public Use
  Company Number: US-GLAXOSMITHKLINE-US2014023457

PATIENT
  Age: 54 Year
  Sex: Male

DRUGS (1)
  1. ABREVA [Suspect]
     Active Substance: DOCOSANOL
     Dosage: UNK
     Route: 061
     Dates: start: 20140331

REACTIONS (3)
  - Oral herpes [Recovered/Resolved]
  - Application site irritation [Recovered/Resolved]
  - Application site scab [Recovered/Resolved]
